FAERS Safety Report 20895236 (Version 1)
Quarter: 2022Q2

REPORT INFORMATION
  Report Type: Spontaneous
  Country: IN (occurrence: IN)
  Receive Date: 20220531
  Receipt Date: 20220531
  Transmission Date: 20220721
  Serious: Yes (Other)
  Sender: FDA-Public Use
  Company Number: IN-MYLANLABS-2022M1040983

PATIENT
  Age: 11 Month
  Sex: Male

DRUGS (12)
  1. METHOTREXATE [Suspect]
     Active Substance: METHOTREXATE
     Indication: Uveitis
     Dosage: 5 MILLIGRAM
     Route: 058
  2. METHOTREXATE [Suspect]
     Active Substance: METHOTREXATE
     Indication: Pyrexia
  3. METHOTREXATE [Suspect]
     Active Substance: METHOTREXATE
     Indication: Diarrhoea
  4. METHOTREXATE [Suspect]
     Active Substance: METHOTREXATE
     Indication: Vomiting
  5. PREDNISOLONE [Suspect]
     Active Substance: PREDNISOLONE
     Indication: Uveitis
     Dosage: 1 MILLIGRAM/KILOGRAM
     Route: 048
  6. PREDNISOLONE [Suspect]
     Active Substance: PREDNISOLONE
     Indication: Pyrexia
  7. PREDNISOLONE [Suspect]
     Active Substance: PREDNISOLONE
     Indication: Diarrhoea
  8. PREDNISOLONE [Suspect]
     Active Substance: PREDNISOLONE
     Indication: Vomiting
  9. THALIDOMIDE [Concomitant]
     Active Substance: THALIDOMIDE
     Indication: Uveitis
     Dosage: UNK
     Route: 065
  10. THALIDOMIDE [Concomitant]
     Active Substance: THALIDOMIDE
     Indication: Pyrexia
  11. THALIDOMIDE [Concomitant]
     Active Substance: THALIDOMIDE
     Indication: Diarrhoea
  12. THALIDOMIDE [Concomitant]
     Active Substance: THALIDOMIDE
     Indication: Vomiting

REACTIONS (2)
  - Drug ineffective for unapproved indication [Unknown]
  - Off label use [Unknown]
